FAERS Safety Report 4899349-8 (Version None)
Quarter: 2006Q1

REPORT INFORMATION
  Report Type: 
  Country: None (occurrence: None)
  Receive Date: 20060131
  Receipt Date: 20060119
  Transmission Date: 20060701
  Serious: Yes (Life-Threatening)
  Sender: FDA-Public Use
  Company Number: 2005156180

PATIENT
  Age: 46 Year
  Sex: Male
  Weight: 127 kg

DRUGS (6)
  1. LIPITOR [Suspect]
     Indication: BLOOD CHOLESTEROL INCREASED
     Dosage: 10 MG (10 MG, 1 IN 1 D), ORAL
     Route: 048
  2. ROSIGLITAZONE (ROSIGLITAZONE) [Concomitant]
  3. GLICLAZIDE (GLICLAZIDE) [Concomitant]
  4. METFORMIN HCL [Concomitant]
  5. ORLISTAT [Concomitant]
  6. ASPIRIN [Concomitant]

REACTIONS (3)
  - ALANINE AMINOTRANSFERASE INCREASED [None]
  - BLOOD ALKALINE PHOSPHATASE INCREASED [None]
  - BLOOD TRIGLYCERIDES INCREASED [None]
